FAERS Safety Report 9949268 (Version 3)
Quarter: 2014Q3

REPORT INFORMATION
  Report Type: Spontaneous
  Country: US (occurrence: None)
  Receive Date: 20140122
  Receipt Date: 20140722
  Transmission Date: 20150326
  Serious: No
  Sender: FDA-Public Use
  Company Number: AEGR000228

PATIENT
  Age: 72 Year
  Sex: Female
  Weight: 89.8 kg

DRUGS (10)
  1. JUXTAPID [Suspect]
     Active Substance: LOMITAPIDE MESYLATE
     Indication: TYPE IIA HYPERLIPIDAEMIA
     Dosage: UNK, ORAL
     Route: 048
     Dates: start: 201311
  2. CALCITROL (CALCITRIOL) [Concomitant]
  3. ATIVAN [Concomitant]
     Active Substance: LORAZEPAM
  4. CLONIDINE (CLONIDINE HYDROCHLORIDE) [Concomitant]
  5. ALLOPURINOL. [Concomitant]
     Active Substance: ALLOPURINOL
  6. BYSTOLIC [Concomitant]
     Active Substance: NEBIVOLOL HYDROCHLORIDE
  7. ECOTRIN [Concomitant]
     Active Substance: ASPIRIN
  8. HUMULIN (INSULIN HUMAN, INSULIN HUMAN INJECTION, ISOPHANE) [Concomitant]
  9. COZAAR (LOSARTAN POTASSIUM) [Concomitant]
  10. COLCHICINE (COLCHICINE) [Concomitant]
     Active Substance: COLCHICINE

REACTIONS (5)
  - Off label use [None]
  - Diarrhoea [None]
  - Nausea [None]
  - Weight decreased [None]
  - Constipation [None]

NARRATIVE: CASE EVENT DATE: 201311
